FAERS Safety Report 10136304 (Version 1)
Quarter: 2014Q2

REPORT INFORMATION
  Report Type: Spontaneous
  Country: US (occurrence: None)
  Receive Date: 20140428
  Receipt Date: 20140428
  Transmission Date: 20141212
  Serious: Yes (Hospitalization)
  Sender: FDA-Public Use
  Company Number: None

PATIENT
  Age: 61 Year
  Sex: Female
  Weight: 65.9 kg

DRUGS (10)
  1. CISPLATIN [Suspect]
     Dates: end: 20110726
  2. ETOPOSIDE (VP-16) [Suspect]
     Dosage: 174 MG ON DAYS 1 - 3?
     Dates: end: 20110728
  3. APREPITANT [Concomitant]
  4. ATIVAN [Concomitant]
  5. COLACE [Concomitant]
  6. DECADRON [Concomitant]
  7. DILANTIN [Concomitant]
  8. MANNITOL [Concomitant]
  9. PRILOSEC [Concomitant]
  10. ZOFRAN [Concomitant]

REACTIONS (6)
  - Vomiting [None]
  - Constipation [None]
  - Aphasia [None]
  - Hypertension [None]
  - Disorientation [None]
  - Convulsion [None]
